FAERS Safety Report 21531660 (Version 1)
Quarter: 2022Q4

REPORT INFORMATION
  Report Type: Spontaneous
  Country: US (occurrence: None)
  Receive Date: 20221028
  Receipt Date: 20221028
  Transmission Date: 20230113
  Serious: No
  Sender: FDA-Public Use
  Company Number: None

PATIENT
  Age: 44 Year
  Sex: Female

DRUGS (1)
  1. IOHEXOL [Suspect]
     Active Substance: IOHEXOL
     Indication: Surgery
     Dosage: 100 ML ONCE IV?
     Route: 042
     Dates: start: 20220202, end: 20220202

REACTIONS (3)
  - Cyanosis [None]
  - Apnoea [None]
  - Pain in extremity [None]

NARRATIVE: CASE EVENT DATE: 20220202
